FAERS Safety Report 13614518 (Version 3)
Quarter: 2017Q3

REPORT INFORMATION
  Report Type: Spontaneous
  Country: IT (occurrence: IT)
  Receive Date: 20170606
  Receipt Date: 20170706
  Transmission Date: 20171127
  Serious: Yes (Hospitalization)
  Sender: FDA-Public Use
  Company Number: IT-ROCHE-1940949

PATIENT
  Age: 3 Month
  Sex: Male

DRUGS (4)
  1. PARACETAMOL [Suspect]
     Active Substance: ACETAMINOPHEN
     Indication: PYREXIA
     Route: 065
  2. IBUPROFEN. [Suspect]
     Active Substance: IBUPROFEN
     Indication: PYREXIA
     Route: 065
  3. IMMUNOGLOBULIN (IVIG) [Suspect]
     Active Substance: HUMAN IMMUNOGLOBULIN G
     Indication: KAWASAKI^S DISEASE
     Route: 042
  4. CEFTRIAXONE. [Suspect]
     Active Substance: CEFTRIAXONE
     Indication: PYREXIA
     Route: 042

REACTIONS (9)
  - Peripheral swelling [Unknown]
  - Acquired hydrocele [Recovering/Resolving]
  - Kawasaki^s disease [Unknown]
  - Therapy non-responder [Unknown]
  - Conjunctivitis [Recovering/Resolving]
  - Condition aggravated [Unknown]
  - Chapped lips [Unknown]
  - Rash generalised [Recovering/Resolving]
  - Coronary artery aneurysm [Recovering/Resolving]
